FAERS Safety Report 11659366 (Version 1)
Quarter: 2015Q4

REPORT INFORMATION
  Report Type: Spontaneous
  Country: FR (occurrence: FR)
  Receive Date: 20151026
  Receipt Date: 20151026
  Transmission Date: 20160304
  Serious: Yes (Hospitalization)
  Sender: FDA-Public Use
  Company Number: FR-BAYER-2015-444919

PATIENT
  Age: 79 Year
  Sex: Female

DRUGS (9)
  1. LANTUS [Suspect]
     Active Substance: INSULIN GLARGINE
     Dosage: 12 IU, QD
     Route: 058
  2. LYRICA [Concomitant]
     Active Substance: PREGABALIN
  3. LANTUS [Suspect]
     Active Substance: INSULIN GLARGINE
     Dosage: 22 IU IN THE MORNING AND 18 IU IN THE EVENING
     Route: 058
  4. LASILIX [Concomitant]
     Active Substance: FUROSEMIDE
     Dosage: 60 MG, QD
  5. ALDACTONE A [Concomitant]
     Active Substance: SPIRONOLACTONE
     Dosage: 25 MG, QD
  6. BARACLUDE [Concomitant]
     Active Substance: ENTECAVIR
     Dosage: 0.5 MG, OM
  7. NEXAVAR [Suspect]
     Active Substance: SORAFENIB
     Dosage: 200 MG, TID
     Route: 048
     Dates: start: 201507
  8. BISOPROLOL [Concomitant]
     Active Substance: BISOPROLOL
     Dosage: 10 MG, QD
  9. NOVORAPID [Concomitant]
     Active Substance: INSULIN ASPART
     Dosage: 20-22-22 IU DAILY

REACTIONS (2)
  - Aphasia [Recovering/Resolving]
  - Hypoglycaemic coma [Recovering/Resolving]

NARRATIVE: CASE EVENT DATE: 20150721
